FAERS Safety Report 4698486-0 (Version None)
Quarter: 2005Q2

REPORT INFORMATION
  Report Type: 
  Country: None (occurrence: None)
  Receive Date: 20050622
  Receipt Date: 20050609
  Transmission Date: 20051028
  Serious: Yes (Other)
  Sender: FDA-Public Use
  Company Number: 2005088299

PATIENT
  Age: 0 Day
  Sex: Female

DRUGS (1)
  1. ZOLOFT [Suspect]
     Indication: ILL-DEFINED DISORDER
     Dates: start: 20010101, end: 20010101

REACTIONS (5)
  - CAESAREAN SECTION [None]
  - DRUG EXPOSURE DURING PREGNANCY [None]
  - NEONATAL ASPIRATION [None]
  - PREMATURE BABY [None]
  - UMBILICAL CORD AROUND NECK [None]
